FAERS Safety Report 7737561-0 (Version None)
Quarter: 2011Q3

REPORT INFORMATION
  Report Type: 
  Country: None (occurrence: None)
  Receive Date: 20110908
  Receipt Date: 20110831
  Transmission Date: 20111222
  Serious: Yes (Death, Hospitalization)
  Sender: FDA-Public Use
  Company Number: FR-PFIZER INC-FR-WYE-G03245209

PATIENT
  Age: 52 Year
  Sex: Male
  Weight: 105 kg

DRUGS (3)
  1. TIGECYCLINE [Suspect]
     Indication: DERMO-HYPODERMITIS
     Dosage: 50 MG, 2X/DAY
     Route: 042
     Dates: start: 20081014, end: 20081018
  2. TIGECYCLINE [Suspect]
     Indication: INFECTIOUS PERITONITIS
  3. DOBUTREX [Concomitant]
     Indication: CARDIOGENIC SHOCK
     Dosage: UNK
     Route: 042
     Dates: start: 20081008

REACTIONS (3)
  - CONDITION AGGRAVATED [None]
  - DRUG INEFFECTIVE [None]
  - CARDIOGENIC SHOCK [None]
